FAERS Safety Report 8334331 (Version 4)
Quarter: 2012Q4

REPORT INFORMATION
  Report Type: 
  Country: FR (occurrence: FR)
  Receive Date: 20120112
  Receipt Date: 20120921
  Transmission Date: 20130627
  Serious: Yes (Hospitalization)
  Sender: FDA-Public Use
  Company Number: FR-PFIZER INC-2012004049

PATIENT
  Age: 65 Year
  Sex: Female

DRUGS (21)
  1. DALACINE [Suspect]
     Indication: ABSCESS BACTERIAL
     Dosage: 600 mg, 3x/day
     Dates: start: 20111125, end: 20111130
  2. DALACINE [Suspect]
     Indication: DIABETIC FOOT
     Dosage: UNK
     Dates: start: 201204
  3. DALACINE [Suspect]
     Indication: OSTEITIS
  4. ZYLORIC [Suspect]
     Dosage: UNK
     Route: 048
     Dates: end: 20111129
  5. TARGOCID [Concomitant]
     Indication: ABSCESS BACTERIAL
     Dosage: 400 mg, 2x/day
     Route: 042
     Dates: start: 20111125, end: 20111130
  6. TARGOCID [Concomitant]
     Indication: OSTEITIS
  7. TARGOCID [Concomitant]
     Indication: DIABETIC FOOT
  8. EUPRESSYL [Concomitant]
     Dosage: 60 mg, 1x/day
     Route: 048
     Dates: start: 20111125, end: 20111130
  9. LASILIX [Concomitant]
  10. PARIET [Concomitant]
  11. APROVEL [Concomitant]
  12. LEXOMIL [Concomitant]
  13. RASILEZ [Concomitant]
  14. NEORECORMON [Concomitant]
  15. CALCIPARINE [Concomitant]
  16. ECONAZOLE [Concomitant]
  17. TAHOR [Concomitant]
  18. FLODIL [Concomitant]
  19. DEROXAT [Concomitant]
  20. SINGULAIR [Concomitant]
  21. LYRICA [Concomitant]

REACTIONS (6)
  - Acute generalised exanthematous pustulosis [Recovered/Resolved]
  - Hepatitis cholestatic [Recovered/Resolved]
  - Rash macular [Recovering/Resolving]
  - Face oedema [Recovering/Resolving]
  - Renal failure [Unknown]
  - Skin test positive [Unknown]
